FAERS Safety Report 15737187 (Version 2)
Quarter: 2019Q2

REPORT INFORMATION
  Report Type: Spontaneous
  Country: US (occurrence: US)
  Receive Date: 20181218
  Receipt Date: 20190507
  Transmission Date: 20190711
  Serious: Yes (Other)
  Sender: FDA-Public Use
  Company Number: US-SA-2018SA340574

PATIENT
  Age: 36 Year
  Sex: Female
  Weight: 85 kg

DRUGS (3)
  1. TAXOTERE [Suspect]
     Active Substance: DOCETAXEL
     Indication: BREAST CANCER FEMALE
     Dosage: 198 UNK, UNK
     Route: 042
     Dates: start: 20020325, end: 20020325
  2. DACTINOMYCIN [Concomitant]
     Active Substance: DACTINOMYCIN
  3. TAXOTERE [Suspect]
     Active Substance: DOCETAXEL
     Dosage: 198 UNK
     Route: 042
     Dates: start: 20020828, end: 20020828

REACTIONS (3)
  - Alopecia [Not Recovered/Not Resolved]
  - Psychological trauma [Unknown]
  - Emotional distress [Unknown]

NARRATIVE: CASE EVENT DATE: 2002
